FAERS Safety Report 5440230-3 (Version None)
Quarter: 2007Q3

REPORT INFORMATION
  Report Type: 
  Country: None (occurrence: None)
  Receive Date: 20070831
  Receipt Date: 20070824
  Transmission Date: 20080115
  Serious: No
  Sender: FDA-Public Use
  Company Number: A0675817A

PATIENT
  Age: 56 Year

DRUGS (1)
  1. ALLI [Suspect]
     Dates: start: 20070615

REACTIONS (6)
  - ABDOMINAL DISTENSION [None]
  - ASTHENIA [None]
  - DRUG INEFFECTIVE [None]
  - FEELING ABNORMAL [None]
  - MUSCLE SPASMS [None]
  - WEIGHT INCREASED [None]
